FAERS Safety Report 8413870-7 (Version None)
Quarter: 2012Q2

REPORT INFORMATION
  Report Type: 
  Country: None (occurrence: None)
  Receive Date: 20120605
  Receipt Date: 20120525
  Transmission Date: 20120825
  Serious: Yes (Hospitalization)
  Sender: FDA-Public Use
  Company Number: JP-VERTEX PHARMACEUTICALS INC.-AE-2012-007988

PATIENT
  Age: 61 Year
  Sex: Male

DRUGS (9)
  1. NEOPHAGEN [Concomitant]
     Dates: start: 20120413, end: 20120501
  2. TELAVIC (TELAPREVIR) [Suspect]
     Route: 048
     Dates: start: 20120407
  3. HIRUDOID [Concomitant]
     Route: 061
     Dates: start: 20120403
  4. TELAVIC (TELAPREVIR) [Suspect]
     Indication: HEPATITIS C
     Route: 048
     Dates: start: 20120403, end: 20120406
  5. RIBAVIRIN [Concomitant]
     Route: 048
     Dates: start: 20120407
  6. RIBAVIRIN [Concomitant]
     Indication: HEPATITIS C
     Route: 048
     Dates: start: 20120403, end: 20120406
  7. PEGINTERFERON ALFA-2B [Concomitant]
     Indication: HEPATITIS C
     Route: 051
     Dates: start: 20120403
  8. ALLOPURINOL [Concomitant]
     Route: 048
  9. URALYT [Concomitant]
     Route: 048

REACTIONS (1)
  - RENAL DISORDER [None]
